FAERS Safety Report 7234125-2 (Version None)
Quarter: 2011Q1

REPORT INFORMATION
  Report Type: 
  Country: None (occurrence: None)
  Receive Date: 20110119
  Receipt Date: 20110110
  Transmission Date: 20110831
  Serious: Yes (Hospitalization)
  Sender: FDA-Public Use
  Company Number: ES-JNJFOC-20101206520

PATIENT
  Age: 54 Year
  Sex: Male

DRUGS (3)
  1. PREDNISONE [Concomitant]
  2. REMICADE [Suspect]
     Indication: RHEUMATOID ARTHRITIS
     Route: 042
  3. METHOTREXATE [Concomitant]

REACTIONS (2)
  - ENDOCARDITIS BACTERIAL [None]
  - SALMONELLOSIS [None]
